FAERS Safety Report 21734308 (Version 1)
Quarter: 2022Q4

REPORT INFORMATION
  Report Type: Spontaneous
  Country: US (occurrence: None)
  Receive Date: 20221215
  Receipt Date: 20221215
  Transmission Date: 20230112
  Serious: Yes (Other)
  Sender: FDA-Public Use
  Company Number: None

PATIENT
  Age: 74 Year
  Sex: Female
  Weight: 57.6 kg

DRUGS (1)
  1. PROLIA [Suspect]
     Active Substance: DENOSUMAB
     Indication: Osteoporosis
     Dosage: OTHER FREQUENCY : Q 6 MONTHS;?
     Route: 058
     Dates: start: 20211027, end: 20220624

REACTIONS (6)
  - Arthralgia [None]
  - Pain in extremity [None]
  - Groin pain [None]
  - Tooth infection [None]
  - Bone graft [None]
  - Radius fracture [None]

NARRATIVE: CASE EVENT DATE: 20220801
